FAERS Safety Report 19259103 (Version 1)
Quarter: 2021Q2

REPORT INFORMATION
  Report Type: Spontaneous
  Country: US (occurrence: US)
  Receive Date: 20210514
  Receipt Date: 20210514
  Transmission Date: 20210717
  Serious: No
  Sender: FDA-Public Use
  Company Number: US-LANNETT COMPANY, INC.-US-2021LAN000022

PATIENT
  Sex: Female

DRUGS (5)
  1. BETHANECHOL CHLORIDE (50MG) [Suspect]
     Active Substance: BETHANECHOL CHLORIDE
     Dosage: 25 MG, TID
     Route: 065
  2. BETHANECHOL CHLORIDE (50MG) [Suspect]
     Active Substance: BETHANECHOL CHLORIDE
     Indication: NEUROGENIC BLADDER
     Dosage: 25 MG, TID
     Route: 065
  3. BETHANECHOL CHLORIDE (50MG) [Suspect]
     Active Substance: BETHANECHOL CHLORIDE
     Dosage: 37 MG, TID
     Route: 065
  4. BETHANECHOL CHLORIDE (50MG) [Suspect]
     Active Substance: BETHANECHOL CHLORIDE
     Dosage: 50 MG, TID
     Route: 065
  5. BETHANECHOL CHLORIDE (50MG) [Suspect]
     Active Substance: BETHANECHOL CHLORIDE
     Dosage: 50 MG, TID
     Route: 065

REACTIONS (6)
  - Nausea [Recovered/Resolved]
  - Dizziness [Recovered/Resolved]
  - Cold sweat [Not Recovered/Not Resolved]
  - Frequent bowel movements [Not Recovered/Not Resolved]
  - Flatulence [Not Recovered/Not Resolved]
  - Drug ineffective [None]
